FAERS Safety Report 18511742 (Version 2)
Quarter: 2020Q4

REPORT INFORMATION
  Report Type: Spontaneous
  Country: DE (occurrence: DE)
  Receive Date: 20201117
  Receipt Date: 20201120
  Transmission Date: 20210114
  Serious: Yes (Other)
  Sender: FDA-Public Use
  Company Number: DE-PFIZER INC-2020444728

PATIENT
  Age: 26 Year
  Sex: Male

DRUGS (4)
  1. BEVACIZUMAB. [Suspect]
     Active Substance: BEVACIZUMAB
     Indication: BRAIN NEOPLASM
     Dosage: 10 MG/KG, CYCLIC (EVERY 2 WEEKS)
  2. TEMOZOLOMIDE. [Concomitant]
     Active Substance: TEMOZOLOMIDE
     Dosage: 500 MG, DAILY
  3. HYDROXYUREA. [Suspect]
     Active Substance: HYDROXYUREA
     Indication: BRAIN NEOPLASM
     Dosage: 500 MG
     Route: 048
  4. DEXAMETHASONE. [Concomitant]
     Active Substance: DEXAMETHASONE
     Dosage: 4-16 MG/DAILY

REACTIONS (2)
  - Impaired healing [Unknown]
  - Skin ulcer [Unknown]
